FAERS Safety Report 24175260 (Version 2)
Quarter: 2025Q2

REPORT INFORMATION
  Report Type: Spontaneous
  Country: US (occurrence: US)
  Receive Date: 20240805
  Receipt Date: 20250529
  Transmission Date: 20250717
  Serious: No
  Sender: SCPHARMACEUTICALS
  Company Number: US-SCPHARMACEUTICALS-2024-SCPH-US000395

PATIENT

DRUGS (6)
  1. FUROSCIX [Suspect]
     Active Substance: FUROSEMIDE
     Indication: Left ventricular failure
     Route: 058
     Dates: start: 20240525
  2. SYNTHROID [Concomitant]
     Active Substance: LEVOTHYROXINE SODIUM
  3. METOPROLOL [Concomitant]
     Active Substance: METOPROLOL
  4. VALTREX [Concomitant]
     Active Substance: VALACYCLOVIR HYDROCHLORIDE
  5. LIPITOR [Concomitant]
     Active Substance: ATORVASTATIN CALCIUM
  6. BUMEX [Concomitant]
     Active Substance: BUMETANIDE

REACTIONS (2)
  - Infusion site bruising [Recovering/Resolving]
  - Infusion site haemorrhage [Recovering/Resolving]

NARRATIVE: CASE EVENT DATE: 20240525
